FAERS Safety Report 7592730-8 (Version None)
Quarter: 2011Q2

REPORT INFORMATION
  Report Type: 
  Country: None (occurrence: None)
  Receive Date: 20110609
  Receipt Date: 20110311
  Transmission Date: 20111010
  Serious: No
  Sender: FDA-Public Use
  Company Number: TH-2011-00030

PATIENT
  Age: 54 Year
  Sex: Male

DRUGS (2)
  1. INSULIN (INSULIN) [Concomitant]
  2. EGRIFTA [Suspect]
     Indication: LIPODYSTROPHY ACQUIRED
     Dosage: 1 IN 1 D, SUBCUTANEOUS
     Route: 058
     Dates: start: 20110201

REACTIONS (3)
  - HEADACHE [None]
  - NAUSEA [None]
  - BLOOD GLUCOSE INCREASED [None]
